FAERS Safety Report 13530599 (Version 1)
Quarter: 2017Q2

REPORT INFORMATION
  Report Type: Spontaneous
  Country: US (occurrence: US)
  Receive Date: 20170510
  Receipt Date: 20170510
  Transmission Date: 20170830
  Serious: No
  Sender: FDA-Public Use
  Company Number: US-ASTRAZENECA-2017SE47011

PATIENT
  Age: 86 Year
  Sex: Female
  Weight: 57.6 kg

DRUGS (2)
  1. PULMICORT FLEXHALER [Suspect]
     Active Substance: BUDESONIDE
     Indication: ASTHMA
     Dosage: 90MCG, 2 INHALATIONS TWICE DAILY
     Route: 055
     Dates: start: 2017
  2. PULMICORT FLEXHALER [Suspect]
     Active Substance: BUDESONIDE
     Indication: COUGH
     Dosage: 90MCG, 2 INHALATIONS TWICE DAILY
     Route: 055
     Dates: start: 2017

REACTIONS (4)
  - Off label use [Unknown]
  - Feeling cold [Unknown]
  - Product use issue [Unknown]
  - Condition aggravated [Unknown]

NARRATIVE: CASE EVENT DATE: 2017
